FAERS Safety Report 4468407-4 (Version None)
Quarter: 2004Q4

REPORT INFORMATION
  Report Type: 
  Country: None (occurrence: None)
  Receive Date: 20041004
  Receipt Date: 20040923
  Transmission Date: 20050328
  Serious: Yes (Hospitalization)
  Sender: FDA-Public Use
  Company Number: 430024M04USA

PATIENT
  Age: 34 Year
  Sex: Female

DRUGS (3)
  1. NOVANTRONE [Suspect]
     Indication: MULTIPLE SCLEROSIS
     Dosage: 1 IN 3 MONTHS
     Dates: start: 20020101, end: 20040501
  2. SOLU-MEDROL [Concomitant]
  3. AVONEX [Concomitant]

REACTIONS (6)
  - CARDIAC FAILURE [None]
  - CARDIOGENIC SHOCK [None]
  - EJECTION FRACTION DECREASED [None]
  - HEART TRANSPLANT [None]
  - POST PROCEDURAL HAEMORRHAGE [None]
  - SEPSIS [None]
